FAERS Safety Report 25288957 (Version 1)
Quarter: 2025Q2

REPORT INFORMATION
  Report Type: Spontaneous
  Country: US (occurrence: US)
  Receive Date: 20250509
  Receipt Date: 20250509
  Transmission Date: 20250717
  Serious: No
  Sender: UCB
  Company Number: US-UCBSA-2024013396

PATIENT
  Age: 46 Year
  Sex: Female
  Weight: 67.846 kg

DRUGS (2)
  1. CIMZIA [Suspect]
     Active Substance: CERTOLIZUMAB PEGOL
     Indication: Crohn^s disease
     Dosage: 400 MILLIGRAM, EV 4 WEEKS (2 ML UNDER SKIN)
     Route: 058
     Dates: start: 2012
  2. CIMZIA [Suspect]
     Active Substance: CERTOLIZUMAB PEGOL
     Dosage: 2 MILLILITER, EV 4 WEEKS
     Route: 058
     Dates: start: 2012

REACTIONS (5)
  - Illness [Unknown]
  - Feeling abnormal [Unknown]
  - Therapy interrupted [Unknown]
  - Product dose omission issue [Unknown]
  - Adverse event [Unknown]

NARRATIVE: CASE EVENT DATE: 20240301
